FAERS Safety Report 25733559 (Version 1)
Quarter: 2025Q3

REPORT INFORMATION
  Report Type: Spontaneous
  Country: US (occurrence: US)
  Receive Date: 20250828
  Receipt Date: 20250828
  Transmission Date: 20251021
  Serious: Yes (Hospitalization, Other)
  Sender: AMGEN
  Company Number: US-AMGEN-USASP2025167589

PATIENT
  Age: 59 Year
  Sex: Male

DRUGS (16)
  1. PREDNISONE [Suspect]
     Active Substance: PREDNISONE
     Indication: Myocarditis-myositis-myasthenia gravis overlap syndrome
     Route: 065
  2. PREDNISONE [Suspect]
     Active Substance: PREDNISONE
     Dosage: 80 MILLIGRAM, QD (TAPERED TO)
     Route: 065
  3. PREDNISONE [Suspect]
     Active Substance: PREDNISONE
     Route: 065
  4. TREMELIMUMAB [Concomitant]
     Active Substance: TREMELIMUMAB
     Indication: Hepatocellular carcinoma
  5. DURVALUMAB [Concomitant]
     Active Substance: DURVALUMAB
     Indication: Hepatocellular carcinoma
  6. ABATACEPT [Concomitant]
     Active Substance: ABATACEPT
     Indication: Myocarditis
  7. RUXOLITINIB [Concomitant]
     Active Substance: RUXOLITINIB
     Indication: Myocarditis
     Dosage: 20 MILLIGRAM, QD
  8. RUXOLITINIB [Concomitant]
     Active Substance: RUXOLITINIB
  9. RUXOLITINIB [Concomitant]
     Active Substance: RUXOLITINIB
     Dosage: 20 MILLIGRAM, BID (FOR 44 DAYS)
  10. RUXOLITINIB [Concomitant]
     Active Substance: RUXOLITINIB
     Dosage: 10 MILLIGRAM, BID (FOR 14 DAYS)
  11. Immunoglobulin [Concomitant]
     Indication: Myasthenia gravis
     Route: 040
  12. PYRIDOSTIGMINE [Concomitant]
     Active Substance: PYRIDOSTIGMINE
     Indication: Myasthenia gravis
     Dosage: 60 MILLIGRAM, BID
  13. PYRIDOSTIGMINE [Concomitant]
     Active Substance: PYRIDOSTIGMINE
     Dosage: 90 MILLIGRAM, BID (INCREASED)
  14. PYRIDOSTIGMINE [Concomitant]
     Active Substance: PYRIDOSTIGMINE
  15. METHYLPREDNISOLONE [Concomitant]
     Active Substance: METHYLPREDNISOLONE
     Indication: Myocarditis
     Dosage: 1 GRAM, QD
  16. METHYLPREDNISOLONE [Concomitant]
     Active Substance: METHYLPREDNISOLONE
     Dosage: 500 MILLIGRAM, QD

REACTIONS (4)
  - Myasthenia gravis [Unknown]
  - Myocarditis [Recovered/Resolved]
  - Hepatocellular carcinoma [Unknown]
  - Off label use [Unknown]
